FAERS Safety Report 17509057 (Version 1)
Quarter: 2020Q1

REPORT INFORMATION
  Report Type: Spontaneous
  Country: US (occurrence: US)
  Receive Date: 20200306
  Receipt Date: 20200306
  Transmission Date: 20200409
  Serious: No
  Sender: FDA-Public Use
  Company Number: None

PATIENT
  Age: 19 Year
  Sex: Female
  Weight: 85.5 kg

DRUGS (1)
  1. MEDROXYPROGESTERONE INJECTION [Suspect]
     Active Substance: MEDROXYPROGESTERONE
     Dosage: ?          OTHER FREQUENCY:EVERY 3 MONTHS;?
     Route: 030

REACTIONS (4)
  - Injection site erythema [None]
  - Oedema peripheral [None]
  - Pain in extremity [None]
  - Injection site discolouration [None]

NARRATIVE: CASE EVENT DATE: 20200305
